FAERS Safety Report 6395716-4 (Version None)
Quarter: 2009Q4

REPORT INFORMATION
  Report Type: 
  Country: None (occurrence: None)
  Receive Date: 20091009
  Receipt Date: 20090928
  Transmission Date: 20100525
  Serious: Yes (Other)
  Sender: FDA-Public Use
  Company Number: PHEH2009US05740

PATIENT
  Sex: Female

DRUGS (7)
  1. EXFORGE HCT [Suspect]
     Dosage: UNK
     Dates: start: 20090601
  2. EXFORGE [Suspect]
     Dosage: 10AMLO/320VAL, 1X/DAY
     Dates: start: 20090701
  3. HYDROCHLOROTHIAZIDE [Suspect]
     Dosage: 2.5 MG, UNK
     Dates: start: 20090701
  4. ANTIHYPERTENSIVES [Concomitant]
     Indication: BLOOD PRESSURE
     Dosage: UNK, UNK
  5. TOPROL-XL [Concomitant]
  6. COUMADIN [Concomitant]
  7. VITAMINS [Concomitant]

REACTIONS (3)
  - BLOOD PRESSURE INCREASED [None]
  - OEDEMA PERIPHERAL [None]
  - SENSORY DISTURBANCE [None]
